FAERS Safety Report 13929247 (Version 1)
Quarter: 2017Q3

REPORT INFORMATION
  Report Type: Spontaneous
  Country: US (occurrence: US)
  Receive Date: 20170901
  Receipt Date: 20170901
  Transmission Date: 20171127
  Serious: No
  Sender: FDA-Public Use
  Company Number: None

PATIENT
  Age: 67 Year
  Sex: Male
  Weight: 79 kg

DRUGS (1)
  1. FLUVASTATIN SODIUM ER [Suspect]
     Active Substance: FLUVASTATIN SODIUM
     Indication: ARTERIOSCLEROSIS
     Route: 048
     Dates: start: 20170824, end: 20170831

REACTIONS (4)
  - Fatigue [None]
  - Blister [None]
  - Dizziness [None]
  - Urticaria [None]

NARRATIVE: CASE EVENT DATE: 20170831
